FAERS Safety Report 15121519 (Version 3)
Quarter: 2020Q3

REPORT INFORMATION
  Report Type: Spontaneous
  Country: KZ (occurrence: KZ)
  Receive Date: 20180709
  Receipt Date: 20180720
  Transmission Date: 20201104
  Serious: Yes (Death)
  Sender: FDA-Public Use
  Company Number: KZ-JNJFOC-20180702188

PATIENT
  Age: 40 Year
  Sex: Female
  Weight: 39 kg

DRUGS (16)
  1. METOCLOPRAMIDE. [Concomitant]
     Active Substance: METOCLOPRAMIDE
     Indication: NAUSEA
     Dosage: 0.5 %?2 ML DAILY
     Route: 030
     Dates: start: 20180516, end: 20180525
  2. LINEZOLID. [Suspect]
     Active Substance: LINEZOLID
     Indication: TUBERCULOSIS
     Route: 065
     Dates: start: 20180209
  3. PREDNISOLONE. [Concomitant]
     Active Substance: PREDNISOLONE
     Route: 042
  4. PYRIDOXINE [Concomitant]
     Active Substance: PYRIDOXINE
     Indication: PROPHYLAXIS
     Dosage: 5 %?1 ML DAILY
     Route: 030
     Dates: start: 20180412, end: 20180421
  5. CLOFAZIMINE [Suspect]
     Active Substance: CLOFAZIMINE
     Indication: TUBERCULOSIS
     Dosage: 200 (100) MG
     Route: 065
     Dates: start: 20180209
  6. AMITRIPTYLINE [Concomitant]
     Active Substance: AMITRIPTYLINE
     Indication: ALCOHOL ABUSE
     Route: 048
     Dates: start: 20180420, end: 20180430
  7. PHYSIOLOGICAL SALINE SOLUTION [Concomitant]
     Active Substance: SODIUM CHLORIDE
     Dosage: 0.9 % ? 250.0
     Route: 065
  8. PYRAZINAMIDE. [Suspect]
     Active Substance: PYRAZINAMIDE
     Indication: TUBERCULOSIS
     Route: 065
     Dates: start: 20180209
  9. AMIKACIN. [Suspect]
     Active Substance: AMIKACIN
     Indication: TUBERCULOSIS
     Dosage: 750 UNITS NOT REPORTED
     Route: 065
  10. AMITRIPTYLINE [Concomitant]
     Active Substance: AMITRIPTYLINE
     Indication: ALCOHOL ABUSE
     Route: 048
     Dates: start: 20180622, end: 20180629
  11. THEOPHYLLINE [Concomitant]
     Active Substance: THEOPHYLLINE ANHYDROUS
     Route: 065
  12. MOXIFLOXACIN. [Suspect]
     Active Substance: MOXIFLOXACIN
     Indication: TUBERCULOSIS
     Route: 065
     Dates: start: 20180209
  13. KETOPROFEN. [Concomitant]
     Active Substance: KETOPROFEN
     Route: 030
  14. EUPHYLLINA [Concomitant]
     Active Substance: THEOPHYLLINE
     Route: 065
  15. BEDAQUILINE [Suspect]
     Active Substance: BEDAQUILINE
     Indication: TUBERCULOSIS
     Dosage: 400 (200) MG
     Route: 048
     Dates: start: 20180209
  16. PANCREATIN [Concomitant]
     Active Substance: PANCRELIPASE
     Route: 065

REACTIONS (2)
  - Nausea [Not Recovered/Not Resolved]
  - Pulmonary tuberculosis [Fatal]

NARRATIVE: CASE EVENT DATE: 201804
